FAERS Safety Report 7771399-3 (Version None)
Quarter: 2011Q3

REPORT INFORMATION
  Report Type: 
  Country: None (occurrence: None)
  Receive Date: 20110922
  Receipt Date: 20100826
  Transmission Date: 20111222
  Serious: No
  Sender: FDA-Public Use
  Company Number: US-ASTRAZENECA-2007UW21677

PATIENT
  Age: 59 Year
  Sex: Female
  Weight: 84.8 kg

DRUGS (21)
  1. SEROQUEL [Suspect]
     Route: 048
     Dates: start: 20050701, end: 20050901
  2. AVAPRO [Concomitant]
     Dosage: 150MG-300MG DAILY
     Dates: start: 20050301
  3. AEROBID [Concomitant]
     Dates: start: 20031103
  4. WELLBUTRIN [Concomitant]
     Dates: start: 20050804
  5. SEROQUEL [Suspect]
     Indication: FATIGUE
     Route: 048
     Dates: start: 20040101
  6. CENESTIN [Concomitant]
     Dates: start: 20040209
  7. ZYRTEC [Concomitant]
     Dates: start: 20031103
  8. NADOLOL [Concomitant]
     Dosage: 80-MG-160MG DAILY
     Dates: start: 20060703
  9. SEROQUEL [Suspect]
     Dosage: 100-200 MG
     Route: 048
     Dates: start: 20040101, end: 20061201
  10. SEROQUEL [Suspect]
     Dosage: 25MG-100MG
     Route: 048
     Dates: start: 20040130
  11. ZELNORM [Concomitant]
     Dates: start: 20050201
  12. CELEXA [Concomitant]
     Dates: start: 20040209
  13. SEROQUEL [Suspect]
     Route: 048
     Dates: start: 20050701, end: 20050901
  14. NEXIUM [Concomitant]
     Dates: start: 20040209
  15. LEXAPRO [Concomitant]
     Indication: DEPRESSION
  16. DIOVAN [Concomitant]
     Dates: start: 20040209
  17. SEROQUEL [Suspect]
     Dosage: 25MG-100MG
     Route: 048
     Dates: start: 20040130
  18. CORZIDE [Concomitant]
     Dates: start: 20050301
  19. SYNTHROID [Concomitant]
     Dates: start: 20050301
  20. SEROQUEL [Suspect]
     Indication: INSOMNIA
     Route: 048
     Dates: start: 20040101
  21. SEROQUEL [Suspect]
     Dosage: 100-200 MG
     Route: 048
     Dates: start: 20040101, end: 20061201

REACTIONS (3)
  - TYPE 2 DIABETES MELLITUS [None]
  - DIABETIC COMPLICATION [None]
  - HYPERGLYCAEMIA [None]
